FAERS Safety Report 24979124 (Version 1)
Quarter: 2025Q1

REPORT INFORMATION
  Report Type: Other
  Country: FR (occurrence: FR)
  Receive Date: 20250218
  Receipt Date: 20250218
  Transmission Date: 20250408
  Serious: Yes (Hospitalization)
  Sender: ZYDUS PHARM
  Company Number: None

PATIENT

DRUGS (2)
  1. ACETAMINOPHEN [Suspect]
     Active Substance: ACETAMINOPHEN
     Indication: Toxicity to various agents
     Route: 048
     Dates: start: 20240516, end: 20240516
  2. VOGALENE [Suspect]
     Active Substance: METOPIMAZINE
     Indication: Toxicity to various agents
     Route: 048
     Dates: start: 20240516, end: 20240516

REACTIONS (4)
  - Analgesic drug level increased [Recovered/Resolved]
  - Hepatic cytolysis [Recovered/Resolved]
  - Prothrombin time ratio decreased [Recovered/Resolved]
  - Nausea [Recovered/Resolved]

NARRATIVE: CASE EVENT DATE: 20240516
